FAERS Safety Report 5028321-2 (Version None)
Quarter: 2006Q2

REPORT INFORMATION
  Report Type: 
  Country: None (occurrence: None)
  Receive Date: 20060503
  Receipt Date: 20060203
  Transmission Date: 20061013
  Serious: No
  Sender: FDA-Public Use
  Company Number: FACT0600067

PATIENT
  Age: 36 Year
  Sex: Male
  Weight: 81.6 kg

DRUGS (1)
  1. FACTIVE [Suspect]
     Indication: RESPIRATORY TRACT INFECTION BACTERIAL
     Dosage: 320MG, QD, ORAL
     Route: 048
     Dates: start: 20060202, end: 20060202

REACTIONS (2)
  - ABDOMINAL DISCOMFORT [None]
  - RASH PRURITIC [None]
